FAERS Safety Report 23396947 (Version 1)
Quarter: 2024Q1

REPORT INFORMATION
  Report Type: Spontaneous
  Country: US (occurrence: US)
  Receive Date: 20240112
  Receipt Date: 20240112
  Transmission Date: 20240409
  Serious: Yes (Other)
  Sender: FDA-Public Use
  Company Number: US-FreseniusKabi-FK202400674

PATIENT
  Age: 81 Year
  Sex: Female

DRUGS (6)
  1. LEVOFLOXACIN [Suspect]
     Active Substance: LEVOFLOXACIN
     Indication: Product used for unknown indication
  2. CIMETIDINE [Suspect]
     Active Substance: CIMETIDINE
     Indication: Product used for unknown indication
  3. ISOPROTERENOL [Suspect]
     Active Substance: ISOPROTERENOL
     Indication: Product used for unknown indication
     Route: 042
  4. LIDOCAINE [Concomitant]
     Active Substance: LIDOCAINE
     Indication: Product used for unknown indication
     Route: 042
  5. MAGNESIUM [Concomitant]
     Active Substance: MAGNESIUM
     Indication: Mineral supplementation
     Route: 042
  6. POTASSIUM [Concomitant]
     Active Substance: POTASSIUM
     Indication: Mineral supplementation
     Route: 042

REACTIONS (2)
  - Torsade de pointes [Recovered/Resolved]
  - Long QT syndrome [Recovered/Resolved]
